FAERS Safety Report 7473154-0 (Version None)
Quarter: 2011Q2

REPORT INFORMATION
  Report Type: 
  Country: None (occurrence: None)
  Receive Date: 20110503
  Receipt Date: 20110418
  Transmission Date: 20111010
  Serious: Yes (Hospitalization)
  Sender: FDA-Public Use
  Company Number: 031697

PATIENT
  Sex: Female

DRUGS (8)
  1. SIMVASTATIN [Concomitant]
  2. KLONOPIN [Concomitant]
  3. KEPPRA [Suspect]
     Indication: CONVULSION
     Dosage: (1000 MG BID ORAL)
     Route: 048
     Dates: start: 20080101
  4. LEVOTHYROXINE SODIUM [Concomitant]
  5. OMEPRAZOLE [Concomitant]
  6. POTASSIUM [Concomitant]
  7. AMLODIPINE [Concomitant]
  8. DEPAKOTE [Suspect]
     Dosage: (2 - 3 TIMES A DAY ORAL)
     Route: 048
     Dates: end: 20100101

REACTIONS (3)
  - PANCREATITIS [None]
  - BLOOD DISORDER [None]
  - DRUG HYPERSENSITIVITY [None]
